FAERS Safety Report 6244428-6 (Version None)
Quarter: 2009Q2

REPORT INFORMATION
  Report Type: 
  Country: None (occurrence: None)
  Receive Date: 20090623
  Receipt Date: 20090623
  Transmission Date: 20091009
  Serious: Yes (Other)
  Sender: FDA-Public Use
  Company Number: None

PATIENT
  Age: 75 Year
  Sex: Female
  Weight: 68.0396 kg

DRUGS (1)
  1. GENERIC DORZOLAMIDE TIMOLOL [Suspect]
     Indication: GLAUCOMA
     Dosage: ONCE GTT OU BID EYE
     Dates: start: 20081115, end: 20081122

REACTIONS (4)
  - EYE DISCHARGE [None]
  - EYE IRRITATION [None]
  - EYE PRURITUS [None]
  - EYELID OEDEMA [None]
